FAERS Safety Report 22358648 (Version 2)
Quarter: 2023Q2

REPORT INFORMATION
  Report Type: Spontaneous
  Country: ES (occurrence: ES)
  Receive Date: 20230524
  Receipt Date: 20230525
  Transmission Date: 20230721
  Serious: Yes (Life-Threatening, Hospitalization, Other)
  Sender: FDA-Public Use
  Company Number: ES-BIAL-BIAL-12225

PATIENT
  Age: 58 Year
  Sex: Male

DRUGS (1)
  1. OMEPRAZOLE [Suspect]
     Active Substance: OMEPRAZOLE
     Indication: Gastrooesophageal reflux disease
     Dosage: 20 MILLIGRAM, 1X / DAY
     Route: 065

REACTIONS (3)
  - Gastric perforation [Recovered/Resolved]
  - Peritonitis [Recovered/Resolved]
  - Gastrointestinal candidiasis [Unknown]
